FAERS Safety Report 5972565-X (Version None)
Quarter: 2008Q4

REPORT INFORMATION
  Report Type: 
  Country: None (occurrence: None)
  Receive Date: 20081201
  Receipt Date: 20081126
  Transmission Date: 20090506
  Serious: Yes (Other)
  Sender: FDA-Public Use
  Company Number: B0548287A

PATIENT
  Sex: Male

DRUGS (2)
  1. HEPSERA [Suspect]
     Dosage: 10MG PER DAY
  2. LAMIVUDINE [Suspect]

REACTIONS (3)
  - DRUG INEFFECTIVE [None]
  - GENOTYPE DRUG RESISTANCE TEST POSITIVE [None]
  - HEPATIC FAILURE [None]
